FAERS Safety Report 18066606 (Version 3)
Quarter: 2021Q1

REPORT INFORMATION
  Report Type: Spontaneous
  Country: US (occurrence: US)
  Receive Date: 20200724
  Receipt Date: 20210325
  Transmission Date: 20210419
  Serious: Yes (Other)
  Sender: FDA-Public Use
  Company Number: US-PFIZER INC-2020282258

PATIENT
  Age: 76 Year
  Sex: Male
  Weight: 86.18 kg

DRUGS (2)
  1. VYNDAMAX [Suspect]
     Active Substance: TAFAMIDIS
     Indication: AMYLOIDOSIS
     Dosage: UNK
  2. VYNDAMAX [Suspect]
     Active Substance: TAFAMIDIS
     Indication: AMYLOIDOSIS SENILE
     Dosage: 61 MG, 1X/DAY
     Route: 048
     Dates: start: 2020

REACTIONS (4)
  - Off label use [Unknown]
  - Foreign body in throat [Unknown]
  - Thrombosis [Unknown]
  - Peripheral coldness [Unknown]
